FAERS Safety Report 7948534-7 (Version None)
Quarter: 2011Q4

REPORT INFORMATION
  Report Type: 
  Country: None (occurrence: None)
  Receive Date: 20111128
  Receipt Date: 20111128
  Transmission Date: 20120403
  Serious: No
  Sender: FDA-Public Use
  Company Number: None

PATIENT
  Sex: Male
  Weight: 130 kg

DRUGS (3)
  1. AVALIDE [Concomitant]
  2. LEUPROLIDE ACETATE [Suspect]
     Dosage: 52.5 MG
  3. CASODEX [Suspect]
     Dosage: 9000 MG

REACTIONS (2)
  - DEPRESSION [None]
  - SUICIDAL IDEATION [None]
